FAERS Safety Report 13383473 (Version 1)
Quarter: 2017Q1

REPORT INFORMATION
  Report Type: Not Available
  Country: None (occurrence: US)
  Receive Date: 20170329
  Receipt Date: 20170329
  Transmission Date: 20170429
  Serious: No
  Sender: FDA-Public Use
  Company Number: US-AKORN-52992

PATIENT
  Sex: Male

DRUGS (1)
  1. ADENSOSINE [Suspect]
     Active Substance: ADENOSINE

REACTIONS (1)
  - Drug ineffective [None]
